FAERS Safety Report 17909960 (Version 1)
Quarter: 2020Q2

REPORT INFORMATION
  Report Type: Spontaneous
  Country: PT (occurrence: PT)
  Receive Date: 20200617
  Receipt Date: 20200617
  Transmission Date: 20200714
  Serious: Yes (Other)
  Sender: FDA-Public Use
  Company Number: PT-GALDERMA-PT2020019113

PATIENT
  Age: 25 Year
  Sex: Male

DRUGS (9)
  1. COLCHICINE. [Concomitant]
     Active Substance: COLCHICINE
     Indication: PLEURITIC PAIN
  2. STEROID [Concomitant]
     Active Substance: UNSPECIFIED INGREDIENT
     Indication: PERICARDIAL EFFUSION
  3. COLCHICINE. [Concomitant]
     Active Substance: COLCHICINE
     Indication: PERICARDIAL EFFUSION
     Route: 065
  4. STEROID [Concomitant]
     Active Substance: UNSPECIFIED INGREDIENT
     Indication: PLEURITIC PAIN
     Route: 048
  5. DOXYCYCLINE. [Suspect]
     Active Substance: DOXYCYCLINE
     Indication: PLEURITIC PAIN
  6. IBUPROFEN. [Concomitant]
     Active Substance: IBUPROFEN
     Indication: PLEURITIC PAIN
     Route: 065
  7. IBUPROFEN. [Concomitant]
     Active Substance: IBUPROFEN
     Indication: PERICARDIAL EFFUSION
  8. DOXYCYCLINE. [Suspect]
     Active Substance: DOXYCYCLINE
     Indication: PERICARDIAL EFFUSION
     Route: 065
  9. ADENOSINE. [Concomitant]
     Active Substance: ADENOSINE
     Indication: TACHYCARDIA
     Route: 065

REACTIONS (2)
  - Drug ineffective for unapproved indication [Recovered/Resolved]
  - Intentional product use issue [Recovered/Resolved]
